FAERS Safety Report 11343655 (Version 1)
Quarter: 2015Q3

REPORT INFORMATION
  Report Type: Spontaneous
  Country: US (occurrence: US)
  Receive Date: 20150806
  Receipt Date: 20150806
  Transmission Date: 20151125
  Serious: No
  Sender: FDA-Public Use
  Company Number: US-LEO PHARMA-232291

PATIENT
  Age: 53 Year
  Sex: Female

DRUGS (1)
  1. PICATO [Suspect]
     Active Substance: INGENOL MEBUTATE
     Indication: ACTINIC KERATOSIS
     Route: 061
     Dates: start: 20150201, end: 20150202

REACTIONS (6)
  - Drug administered at inappropriate site [Unknown]
  - Circumstance or information capable of leading to medication error [Unknown]
  - Application site erythema [Not Recovered/Not Resolved]
  - Application site pruritus [Not Recovered/Not Resolved]
  - Drug ineffective [Unknown]
  - Drug administration error [Unknown]

NARRATIVE: CASE EVENT DATE: 20150202
